FAERS Safety Report 6872363-9 (Version None)
Quarter: 2010Q3

REPORT INFORMATION
  Report Type: 
  Country: None (occurrence: None)
  Receive Date: 20100723
  Receipt Date: 20080920
  Transmission Date: 20110219
  Serious: No
  Sender: FDA-Public Use
  Company Number: US-PFIZER INC-2008080752

PATIENT
  Sex: Male
  Weight: 74.84 kg

DRUGS (2)
  1. CHANTIX [Suspect]
     Indication: SMOKING CESSATION THERAPY
     Dates: start: 20080801
  2. TYLENOL PM [Concomitant]
     Indication: PAIN

REACTIONS (5)
  - FATIGUE [None]
  - FEELING DRUNK [None]
  - LETHARGY [None]
  - MALAISE [None]
  - SLUGGISHNESS [None]
